FAERS Safety Report 8453599-2 (Version None)
Quarter: 2012Q2

REPORT INFORMATION
  Report Type: 
  Country: None (occurrence: None)
  Receive Date: 20120620
  Receipt Date: 20120615
  Transmission Date: 20120825
  Serious: Yes (Disabling)
  Sender: FDA-Public Use
  Company Number: DK-MERCK-1206USA02816

PATIENT
  Age: 69 Year
  Sex: Female

DRUGS (8)
  1. FUROSEMIDE [Concomitant]
     Route: 065
  2. ISOPTIN [Concomitant]
     Route: 065
  3. ACETAMINOPHEN [Concomitant]
     Route: 065
  4. SPIRONOLACTONE [Concomitant]
     Route: 065
  5. SIMVASTATIN [Concomitant]
     Route: 065
  6. WARFARIN SODIUM [Concomitant]
     Route: 065
  7. JANUVIA [Suspect]
     Indication: TYPE 2 DIABETES MELLITUS
     Route: 048
  8. ORABET (METFORMIN HYDROCHLORIDE) [Concomitant]
     Route: 065

REACTIONS (2)
  - POLYARTHRITIS [None]
  - PAIN IN EXTREMITY [None]
